FAERS Safety Report 19668994 (Version 2)
Quarter: 2022Q1

REPORT INFORMATION
  Report Type: Spontaneous
  Country: US (occurrence: None)
  Receive Date: 20210806
  Receipt Date: 20220329
  Transmission Date: 20220423
  Serious: Yes (Other)
  Sender: FDA-Public Use
  Company Number: 2021A656010

PATIENT
  Age: 51 Year
  Sex: Male
  Weight: 114.8 kg

DRUGS (58)
  1. NEXIUM [Suspect]
     Active Substance: ESOMEPRAZOLE MAGNESIUM
     Indication: Gastrooesophageal reflux disease
     Route: 048
     Dates: start: 2010, end: 2019
  2. NEXIUM [Suspect]
     Active Substance: ESOMEPRAZOLE MAGNESIUM
     Indication: Gastrooesophageal reflux disease
     Route: 048
     Dates: start: 2014, end: 2019
  3. NEXIUM [Suspect]
     Active Substance: ESOMEPRAZOLE MAGNESIUM
     Indication: Gastrooesophageal reflux disease
     Dosage: GENERIC
     Route: 065
     Dates: start: 2016, end: 2018
  4. NEXIUM 24HR [Suspect]
     Active Substance: ESOMEPRAZOLE MAGNESIUM
     Indication: Gastrooesophageal reflux disease
     Dosage: DOSAGE AS RECOMMENDED
     Route: 048
     Dates: start: 2014, end: 2019
  5. PRILOSEC [Suspect]
     Active Substance: OMEPRAZOLE MAGNESIUM
     Indication: Gastrooesophageal reflux disease
     Route: 048
     Dates: start: 2010, end: 2019
  6. PRILOSEC [Suspect]
     Active Substance: OMEPRAZOLE MAGNESIUM
     Indication: Gastrooesophageal reflux disease
     Route: 048
     Dates: start: 2014, end: 2019
  7. PRILOSEC [Suspect]
     Active Substance: OMEPRAZOLE MAGNESIUM
     Indication: Gastrooesophageal reflux disease
     Route: 065
     Dates: start: 2015, end: 2019
  8. PROTONIX [Suspect]
     Active Substance: PANTOPRAZOLE SODIUM
     Indication: Gastrooesophageal reflux disease
     Route: 065
     Dates: start: 2015
  9. PROTONIX [Suspect]
     Active Substance: PANTOPRAZOLE SODIUM
     Indication: Gastrooesophageal reflux disease
     Route: 065
     Dates: start: 2016, end: 2019
  10. ALLOPURINOL [Concomitant]
     Active Substance: ALLOPURINOL
     Indication: Gout
  11. TRAMADOL [Concomitant]
     Active Substance: TRAMADOL
     Indication: Pain
  12. ATORVASTATIN [Concomitant]
     Active Substance: ATORVASTATIN
     Indication: Blood cholesterol
  13. LISINOPRIL [Concomitant]
     Active Substance: LISINOPRIL
     Indication: Hypertension
  14. FUROSEMIDE [Concomitant]
     Active Substance: FUROSEMIDE
     Indication: Diuretic therapy
  15. CLOPIDOGREL [Concomitant]
     Active Substance: CLOPIDOGREL BISULFATE
     Indication: Cardiac disorder
  16. LOVASTATIN [Concomitant]
     Active Substance: LOVASTATIN
     Indication: Blood cholesterol
  17. PRAVASTATIN [Concomitant]
     Active Substance: PRAVASTATIN
     Indication: Blood cholesterol
  18. AZITHROMYCIN [Concomitant]
     Active Substance: AZITHROMYCIN
     Indication: Infection
  19. SIMVASTATIN [Concomitant]
     Active Substance: SIMVASTATIN
     Indication: Blood cholesterol
  20. RAMIPRIL [Concomitant]
     Active Substance: RAMIPRIL
     Indication: Hypertension
  21. TYLENOL [Concomitant]
     Active Substance: ACETAMINOPHEN
     Indication: Pain
  22. ASPIRIN [Concomitant]
     Active Substance: ASPIRIN
     Indication: Pain
  23. FLUXID [Concomitant]
     Active Substance: FAMOTIDINE
  24. PEPCID [Concomitant]
     Active Substance: FAMOTIDINE
  25. TAGAMET [Concomitant]
     Active Substance: CIMETIDINE
  26. ZANTAC [Concomitant]
     Active Substance: RANITIDINE HYDROCHLORIDE
  27. RANITIDINE [Concomitant]
     Active Substance: RANITIDINE
  28. FAMOTIDINE [Concomitant]
     Active Substance: FAMOTIDINE
  29. ALKA-SELTZER [Concomitant]
     Active Substance: ANHYDROUS CITRIC ACID\ASPIRIN\SODIUM BICARBONATE
  30. OXYCODONE AND ACETAMINOPHEN [Concomitant]
     Active Substance: ACETAMINOPHEN\OXYCODONE HYDROCHLORIDE
  31. PROMETHAZINE [Concomitant]
     Active Substance: PROMETHAZINE HYDROCHLORIDE
  32. AMLODIPINE BESYLATE [Concomitant]
     Active Substance: AMLODIPINE BESYLATE
  33. ATENOLOL [Concomitant]
     Active Substance: ATENOLOL
  34. CEPHALEXIN [Concomitant]
     Active Substance: CEPHALEXIN
  35. DOXYCYCLINE [Concomitant]
     Active Substance: DOXYCYCLINE
  36. MUPIROCIN [Concomitant]
     Active Substance: MUPIROCIN
  37. HYDROCODONE [Concomitant]
     Active Substance: HYDROCODONE
  38. IBUPROFEN [Concomitant]
     Active Substance: IBUPROFEN
  39. ENALAPRIL [Concomitant]
     Active Substance: ENALAPRIL
  40. GELNIQUE [Concomitant]
     Active Substance: OXYBUTYNIN
  41. GLYBURIDE [Concomitant]
     Active Substance: GLYBURIDE
  42. AMOXICILLIN [Concomitant]
     Active Substance: AMOXICILLIN
  43. DIPHENOXYLATE [Concomitant]
     Active Substance: DIPHENOXYLATE
  44. PREDNISONE [Concomitant]
     Active Substance: PREDNISONE
  45. ONDANSETRON [Concomitant]
     Active Substance: ONDANSETRON
  46. LEVETIRACETAM [Concomitant]
     Active Substance: LEVETIRACETAM
  47. NAPROXEN [Concomitant]
     Active Substance: NAPROXEN
  48. SULFAMETHOXAZOLE\TRIMETHOPRIM [Concomitant]
     Active Substance: SULFAMETHOXAZOLE\TRIMETHOPRIM
  49. GABAPENTIN [Concomitant]
     Active Substance: GABAPENTIN
  50. LANTUS [Concomitant]
     Active Substance: INSULIN GLARGINE
  51. JANUVIA [Concomitant]
     Active Substance: SITAGLIPTIN PHOSPHATE
  52. VITAMIN D2 [Concomitant]
     Active Substance: ERGOCALCIFEROL
  53. CICLOPIROX [Concomitant]
     Active Substance: CICLOPIROX
  54. FLUCELVAX NOS [Concomitant]
     Active Substance: INFLUENZA A VIRUS A/BRISBANE/10/2010 (H1N1) ANTIGEN (MDCK CELL DERIVED, PROPIOLACTONE INACTIVATED)\I
  55. NICOTINE [Concomitant]
     Active Substance: NICOTINE
  56. GAVILYTE [Concomitant]
  57. CARVEDILOL [Concomitant]
     Active Substance: CARVEDILOL
  58. DICLOFENAC [Concomitant]
     Active Substance: DICLOFENAC

REACTIONS (2)
  - Acute kidney injury [Not Recovered/Not Resolved]
  - Abdominal pain upper [Not Recovered/Not Resolved]

NARRATIVE: CASE EVENT DATE: 20150101
